FAERS Safety Report 6409904-1 (Version None)
Quarter: 2009Q4

REPORT INFORMATION
  Report Type: 
  Country: None (occurrence: None)
  Receive Date: 20091022
  Receipt Date: 20091014
  Transmission Date: 20100525
  Serious: Yes (Hospitalization)
  Sender: FDA-Public Use
  Company Number: US-BAXTER-2009BH016009

PATIENT
  Sex: Male

DRUGS (1)
  1. TISSEEL VH/SD FROZEN [Suspect]
     Indication: DRUG USE FOR UNKNOWN INDICATION
     Route: 061

REACTIONS (1)
  - DRUG ADMINISTRATION ERROR [None]
